FAERS Safety Report 19524716 (Version 1)
Quarter: 2021Q3

REPORT INFORMATION
  Report Type: Spontaneous
  Country: US (occurrence: US)
  Receive Date: 20210712
  Receipt Date: 20210712
  Transmission Date: 20211014
  Serious: No
  Sender: FDA-Public Use
  Company Number: None

PATIENT
  Age: 65 Year
  Sex: Male
  Weight: 79 kg

DRUGS (14)
  1. JARDIANCE [Concomitant]
     Active Substance: EMPAGLIFLOZIN
  2. INTRON A [Suspect]
     Active Substance: INTERFERON ALFA-2B
     Indication: CHRONIC DISEASE
     Dosage: ?          OTHER FREQUENCY:TWICE WEEKLY;?
     Route: 058
     Dates: start: 20210317
  3. DEXAMETHASONE 0.5MG [Concomitant]
     Active Substance: DEXAMETHASONE
  4. INTRON A [Suspect]
     Active Substance: INTERFERON ALFA-2B
     Indication: MYELOPROLIFERATIVE NEOPLASM
     Dosage: ?          OTHER FREQUENCY:TWICE WEEKLY;?
     Route: 058
     Dates: start: 20210317
  5. ASPIRIN 81MG [Concomitant]
     Active Substance: ASPIRIN
  6. METFORMIN 500MG [Concomitant]
     Active Substance: METFORMIN HYDROCHLORIDE
  7. METOPROLOL SUCCINATE ER 25MG [Concomitant]
  8. AMLODIPINE [Concomitant]
     Active Substance: AMLODIPINE BESYLATE
  9. LISINOPRIL. [Concomitant]
     Active Substance: LISINOPRIL
  10. OMEPRAZOLE 20MG [Concomitant]
     Active Substance: OMEPRAZOLE
  11. ALLOPURINOL 100MG [Concomitant]
     Active Substance: ALLOPURINOL
  12. ROSUVASTATIN 40MG [Concomitant]
     Active Substance: ROSUVASTATIN
  13. MAGNESIUM 500MG [Concomitant]
  14. OMEGA?3 1000MG [Concomitant]

REACTIONS (1)
  - Fatigue [None]

NARRATIVE: CASE EVENT DATE: 20210712
